FAERS Safety Report 4391570-0 (Version None)
Quarter: 2004Q3

REPORT INFORMATION
  Report Type: 
  Country: None (occurrence: None)
  Receive Date: 20040702
  Receipt Date: 20040222
  Transmission Date: 20050211
  Serious: No
  Sender: FDA-Public Use
  Company Number: 2004UW03192

PATIENT
  Age: 67 Year
  Sex: Male

DRUGS (3)
  1. CRESTOR [Suspect]
  2. WARFARIN SODIUM [Suspect]
  3. LIPITOR [Concomitant]

REACTIONS (1)
  - INTERNATIONAL NORMALISED RATIO INCREASED [None]
